FAERS Safety Report 10121077 (Version 1)
Quarter: 2014Q2

REPORT INFORMATION
  Report Type: Spontaneous
  Country: US (occurrence: US)
  Receive Date: 20140425
  Receipt Date: 20140425
  Transmission Date: 20141212
  Serious: Yes (Death, Congenital Anomaly, Other)
  Sender: FDA-Public Use
  Company Number: US-JNJFOC-20140417020

PATIENT
  Sex: Female

DRUGS (4)
  1. TOPAMAX [Suspect]
     Indication: DEPRESSION
     Dosage: MOTHER^S DOSING
     Route: 064
  2. TOPAMAX [Suspect]
     Indication: ANXIETY
     Dosage: MOTHER^S DOSING
     Route: 064
  3. Z-PAK [Suspect]
     Indication: GENITOURINARY TRACT INFECTION
     Dosage: MOTHER^S DOSING
     Route: 064
  4. MACROBID (NITROFURANTOIN) [Suspect]
     Indication: DYSURIA
     Dosage: MOTHER^S DOSING
     Route: 064

REACTIONS (4)
  - Renal aplasia [Fatal]
  - Oligohydramnios [Fatal]
  - Heart rate abnormal [Unknown]
  - Foetal exposure during pregnancy [Unknown]
